FAERS Safety Report 8604230-4 (Version None)
Quarter: 2012Q3

REPORT INFORMATION
  Report Type: 
  Country: None (occurrence: None)
  Receive Date: 20120820
  Receipt Date: 20120816
  Transmission Date: 20120928
  Serious: Yes (Other)
  Sender: FDA-Public Use
  Company Number: US-PFIZER INC-2012201173

PATIENT
  Age: 43 Year
  Sex: Female

DRUGS (2)
  1. CLONAZEPAM [Suspect]
     Dosage: 25 MG, 2X/DAY
  2. ZOLOFT [Suspect]
     Dosage: 100 MG, PER DAY

REACTIONS (1)
  - ECCHYMOSIS [None]
